FAERS Safety Report 8400228-X (Version None)
Quarter: 2012Q2

REPORT INFORMATION
  Report Type: 
  Country: None (occurrence: None)
  Receive Date: 20120525
  Receipt Date: 20120515
  Transmission Date: 20120825
  Serious: Yes (Hospitalization, Other)
  Sender: FDA-Public Use
  Company Number: DKLU1080340

PATIENT
  Age: 44 Year
  Sex: Male

DRUGS (8)
  1. KLONOPIN [Concomitant]
  2. FELBATOL [Concomitant]
  3. ONFI [Suspect]
     Indication: PARTIAL SEIZURES
     Dosage: 1 IN 1 D, ORAL, AM, ORAL, PM ORAL
     Route: 048
     Dates: start: 20120518
  4. ONFI [Suspect]
     Indication: PARTIAL SEIZURES
     Dosage: 1 IN 1 D, ORAL, AM, ORAL, PM ORAL
     Route: 048
     Dates: start: 20120511
  5. ONFI [Suspect]
     Indication: PARTIAL SEIZURES
     Dosage: 1 IN 1 D, ORAL, AM, ORAL, PM ORAL
     Route: 048
     Dates: start: 20120504
  6. ONFI [Suspect]
     Indication: PARTIAL SEIZURES
     Dosage: 1 IN 1 D, ORAL, AM, ORAL, PM ORAL
     Route: 048
     Dates: start: 20120507
  7. TRILEPTAL [Concomitant]
  8. BANZEL (RUFINAMIDE) [Concomitant]

REACTIONS (4)
  - OROPHARYNGEAL PAIN [None]
  - CLAVICLE FRACTURE [None]
  - HEADACHE [None]
  - ATONIC SEIZURES [None]
